FAERS Safety Report 20163953 (Version 1)
Quarter: 2021Q4

REPORT INFORMATION
  Report Type: Spontaneous
  Country: JP (occurrence: JP)
  Receive Date: 20211209
  Receipt Date: 20211209
  Transmission Date: 20220303
  Serious: Yes (Other)
  Sender: FDA-Public Use
  Company Number: JP-NOVARTISPH-NVSJ2021JP020178

PATIENT

DRUGS (1)
  1. NEVANAC [Suspect]
     Active Substance: NEPAFENAC
     Indication: Product used for unknown indication
     Dosage: UNK
     Route: 047

REACTIONS (2)
  - Diabetes mellitus [Unknown]
  - Urine abnormality [Unknown]
